FAERS Safety Report 4279521-0 (Version None)
Quarter: 2004Q1

REPORT INFORMATION
  Report Type: 
  Country: None (occurrence: None)
  Receive Date: 20040123
  Receipt Date: 20040108
  Transmission Date: 20041129
  Serious: Yes (Hospitalization)
  Sender: FDA-Public Use
  Company Number: 232911

PATIENT
  Age: 27 Year
  Sex: Female

DRUGS (3)
  1. NOVORAPID PENFILL (NOVORAPID PENFILL ) (INSULIN ASPART) SOLUTION FOR I [Suspect]
     Dosage: 40 IE, QD, SUBCUTANEOUS
     Route: 058
     Dates: start: 20030131
  2. PROTAPHANE PENFILL (INSULIN HUMAN) SUSPENSION FOR INJECTION [Concomitant]
  3. ACETYLSALICYLIC ACID SRT [Concomitant]

REACTIONS (4)
  - CAESAREAN SECTION [None]
  - COMPLICATIONS OF MATERNAL EXPOSURE TO THERAPEUTIC DRUGS [None]
  - MATERNAL DRUGS AFFECTING FOETUS [None]
  - TACHYCARDIA FOETAL [None]
